FAERS Safety Report 6786614-2 (Version None)
Quarter: 2010Q2

REPORT INFORMATION
  Report Type: 
  Country: None (occurrence: None)
  Receive Date: 20100623
  Receipt Date: 20100615
  Transmission Date: 20101027
  Serious: Yes (Hospitalization)
  Sender: FDA-Public Use
  Company Number: KR-BAYER-201028582GPV

PATIENT
  Age: 79 Year
  Sex: Male
  Weight: 53 kg

DRUGS (5)
  1. NEXAVAR [Suspect]
     Indication: GASTROINTESTINAL STROMAL TUMOUR
     Dosage: TOTAL DAILY DOSE: 800 MG  UNIT DOSE: 200 MG
     Route: 048
     Dates: start: 20100519, end: 20100601
  2. KALIMATE [Concomitant]
     Indication: PROPHYLAXIS
     Dosage: TOTAL DAILY DOSE: 30 G
     Route: 048
     Dates: start: 20090810
  3. ALDACTONE [Concomitant]
     Route: 048
     Dates: start: 20090101
  4. LASIX [Concomitant]
     Route: 048
     Dates: start: 20090101
  5. MEGACE [Concomitant]
     Route: 048
     Dates: start: 20090101

REACTIONS (1)
  - PLEURAL EFFUSION [None]
